FAERS Safety Report 9557646 (Version 1)
Quarter: 2013Q3

REPORT INFORMATION
  Report Type: Spontaneous
  Country: DE (occurrence: DE)
  Receive Date: 20130926
  Receipt Date: 20130926
  Transmission Date: 20140515
  Serious: Yes (Disabling)
  Sender: FDA-Public Use
  Company Number: DE-GLAXOSMITHKLINE-D0080479A

PATIENT
  Sex: Male
  Weight: 81 kg

DRUGS (2)
  1. ZEFFIX [Suspect]
     Indication: CHRONIC HEPATITIS B
     Route: 048
  2. HEPSERA [Suspect]
     Indication: CHRONIC HEPATITIS B
     Dosage: 10MG PER DAY
     Route: 048

REACTIONS (1)
  - Penile curvature [Not Recovered/Not Resolved]
